FAERS Safety Report 10155157 (Version 1)
Quarter: 2014Q2

REPORT INFORMATION
  Report Type: Spontaneous
  Country: US (occurrence: None)
  Receive Date: 20140505
  Receipt Date: 20140505
  Transmission Date: 20141212
  Serious: Yes (Hospitalization)
  Sender: FDA-Public Use
  Company Number: None

PATIENT
  Age: 62 Year
  Sex: Female
  Weight: 57.4 kg

DRUGS (2)
  1. RIBAVIRIN 200 MG (RIBAVIRIN) [Suspect]
     Indication: HEPATITIS C
     Route: 048
     Dates: start: 20140118
  2. SOFOSBUVIR 400 MG [Suspect]
     Indication: HEPATITIS C
     Route: 048
     Dates: start: 20140118

REACTIONS (1)
  - Haemoglobin decreased [None]
